FAERS Safety Report 5130171-3 (Version None)
Quarter: 2006Q4

REPORT INFORMATION
  Report Type: 
  Country: None (occurrence: None)
  Receive Date: 20061013
  Receipt Date: 20060926
  Transmission Date: 20070319
  Serious: No
  Sender: FDA-Public Use
  Company Number: US200606003346

PATIENT
  Age: 53 Year
  Sex: Female
  Weight: 63.5 kg

DRUGS (8)
  1. CYMBALTA [Suspect]
     Indication: DEPRESSION
     Dosage: 60 MG; SEE IMAGE
     Dates: start: 20041101, end: 20060613
  2. TYLENOL W/ CODEINE NO. 3 [Concomitant]
  3. DEXEDRINE [Concomitant]
  4. ESTRACE [Concomitant]
  5. ARICEPT /JPN/(DONEPEZIL HYDROCHLORIDE) [Concomitant]
  6. ATIVAN [Concomitant]
  7. NEURONTIN [Concomitant]
  8. LEVOXYL [Concomitant]

REACTIONS (2)
  - ALANINE AMINOTRANSFERASE INCREASED [None]
  - ASPARTATE AMINOTRANSFERASE INCREASED [None]
